FAERS Safety Report 20351690 (Version 1)
Quarter: 2022Q1

REPORT INFORMATION
  Report Type: Spontaneous
  Country: None (occurrence: US)
  Receive Date: 20220119
  Receipt Date: 20220119
  Transmission Date: 20220424
  Serious: No
  Sender: FDA-Public Use
  Company Number: US-Akron, Inc.-2124096

PATIENT
  Age: 21 Year
  Sex: Male

DRUGS (1)
  1. MYORISAN [Suspect]
     Active Substance: ISOTRETINOIN
     Route: 048
     Dates: start: 20211013

REACTIONS (1)
  - Drug intolerance [Unknown]
